FAERS Safety Report 25831027 (Version 3)
Quarter: 2025Q4

REPORT INFORMATION
  Report Type: Report from Study
  Country: US (occurrence: US)
  Receive Date: 20250922
  Receipt Date: 20251009
  Transmission Date: 20260117
  Serious: No
  Sender: SANOFI AVENTIS
  Company Number: US-SA-2025SA281698

PATIENT
  Age: 55 Year
  Sex: Male

DRUGS (2)
  1. TZIELD [Suspect]
     Active Substance: TEPLIZUMAB-MZWV
     Indication: Diabetes prophylaxis
     Dosage: UNK
     Route: 042
     Dates: start: 20250912, end: 20250925
  2. IBUPROFEN [Concomitant]
     Active Substance: IBUPROFEN
     Indication: Premedication

REACTIONS (3)
  - Lethargy [Recovering/Resolving]
  - Pyrexia [Recovered/Resolved]
  - Rash [Recovering/Resolving]

NARRATIVE: CASE EVENT DATE: 20250101
